FAERS Safety Report 4591323-4 (Version None)
Quarter: 2005Q1

REPORT INFORMATION
  Report Type: 
  Country: None (occurrence: None)
  Receive Date: 20050225
  Receipt Date: 20050216
  Transmission Date: 20050727
  Serious: Yes (Death)
  Sender: FDA-Public Use
  Company Number: JP-ROCHE-395674

PATIENT
  Age: 6 Year
  Sex: Female

DRUGS (29)
  1. MYCOPHENOLATE MOFETIL [Suspect]
     Route: 048
     Dates: start: 20040924, end: 20041227
  2. MYCOPHENOLATE MOFETIL [Suspect]
     Route: 048
     Dates: start: 20050102, end: 20050211
  3. CYCLOSPORINE [Suspect]
     Route: 065
     Dates: start: 20040903
  4. STEROID [Suspect]
     Route: 048
     Dates: start: 20041218
  5. METHYLPREDNISOLONE [Suspect]
     Route: 042
     Dates: start: 20041119, end: 20041121
  6. METHYLPREDNISOLONE [Suspect]
     Route: 042
     Dates: start: 20041122, end: 20041206
  7. METHYLPREDNISOLONE [Suspect]
     Route: 042
     Dates: start: 20041207, end: 20041213
  8. METHYLPREDNISOLONE [Suspect]
     Route: 042
     Dates: start: 20041214, end: 20041222
  9. DENOSINE [Suspect]
     Indication: DRUG USE FOR UNKNOWN INDICATION
     Route: 042
     Dates: start: 20041220
  10. MORPHINE HYDROCHLORIDE [Suspect]
     Indication: DRUG USE FOR UNKNOWN INDICATION
     Route: 065
  11. MEROPENEM [Concomitant]
     Dosage: STOPPED 20 DEC, RESTARTED 27 DEC 2004
     Route: 042
     Dates: start: 20041213, end: 20050212
  12. CEFOTIAM HYDROCHLORIDE [Concomitant]
     Route: 042
     Dates: start: 20041213, end: 20041215
  13. GENTAMICIN [Concomitant]
     Route: 042
     Dates: start: 20041220, end: 20041222
  14. VANCOMYCIN [Concomitant]
     Route: 042
     Dates: start: 20041221, end: 20041227
  15. DIFLUCAN [Concomitant]
  16. FUNGIZONE [Concomitant]
  17. MICAFUNGIN [Concomitant]
  18. VFEND [Concomitant]
  19. CIPROFLOXACIN HYDROCHLORIDE [Concomitant]
  20. ITRIZOLE [Concomitant]
  21. PLATELETS [Concomitant]
  22. HANP [Concomitant]
  23. ANTHROBIN [Concomitant]
  24. LASIX [Concomitant]
  25. PROSTARMON F [Concomitant]
  26. VAGOSTIGMIN [Concomitant]
  27. ENEMA NOS [Concomitant]
  28. MINOCYCLINE HCL [Concomitant]
  29. NEUTROGIN [Concomitant]

REACTIONS (9)
  - ASPERGILLOSIS [None]
  - HEPATIC FUNCTION ABNORMAL [None]
  - ILEUS PARALYTIC [None]
  - MULTI-ORGAN FAILURE [None]
  - PLATELET COUNT DECREASED [None]
  - RENAL FAILURE [None]
  - SEPSIS [None]
  - TRANSPLANT REJECTION [None]
  - WHITE BLOOD CELL COUNT DECREASED [None]
